FAERS Safety Report 8831307 (Version 4)
Quarter: 2013Q2

REPORT INFORMATION
  Report Type: Report from Study
  Country: JP (occurrence: JP)
  Receive Date: 20121008
  Receipt Date: 20130618
  Transmission Date: 20140414
  Serious: Yes (Other)
  Sender: FDA-Public Use
  Company Number: JP-VERTEX PHARMACEUTICAL INC.-2012-022181

PATIENT
  Age: 35 Year
  Sex: Male

DRUGS (9)
  1. VX-950 (TELAPREVIR) [Suspect]
     Indication: CHRONIC HEPATITIS C
     Dosage: 2250 MG, QD
     Route: 048
     Dates: start: 20120815, end: 20120904
  2. VX-950 (TELAPREVIR) [Suspect]
     Dosage: 1500 MG, QD
     Route: 048
     Dates: start: 20120905, end: 20121112
  3. PEGINTERFERON ALFA-2B [Suspect]
     Indication: CHRONIC HEPATITIS C
     Dosage: 1.5 ?G/KG, QW
     Route: 058
     Dates: start: 20120815, end: 20120917
  4. PEGINTERFERON ALFA-2B [Suspect]
     Dosage: .75 ?G/KG, QW
     Route: 058
     Dates: start: 20120918, end: 20120923
  5. PEGINTERFERON ALFA-2B [Suspect]
     Dosage: .94 ?G/KG, QW
     Route: 058
     Dates: start: 20120924, end: 20121014
  6. PEGINTERFERON ALFA-2B [Suspect]
     Dosage: 1.125 ?G/KG, QW
     Route: 058
     Dates: start: 20121015, end: 20121125
  7. PEGINTERFERON ALFA-2B [Suspect]
     Dosage: 1.5 ?G/KG, QW
     Route: 058
     Dates: start: 20121126, end: 20130128
  8. RIBAVIRIN [Concomitant]
     Dosage: 800 MG, QD
     Route: 048
     Dates: start: 20120815, end: 20130128
  9. NEXIUM [Concomitant]
     Dosage: 20 MG, QD
     Route: 048
     Dates: end: 20130128

REACTIONS (1)
  - Neutrophil count decreased [Recovered/Resolved]
